FAERS Safety Report 6596771-9 (Version None)
Quarter: 2010Q1

REPORT INFORMATION
  Report Type: 
  Country: None (occurrence: None)
  Receive Date: 20100223
  Receipt Date: 20100212
  Transmission Date: 20100710
  Serious: Yes (Hospitalization)
  Sender: FDA-Public Use
  Company Number: US-WYE-H13541310

PATIENT
  Sex: Female
  Weight: 61.29 kg

DRUGS (3)
  1. PREMARIN [Suspect]
     Indication: OESTROGEN THERAPY
     Route: 048
     Dates: start: 20091221
  2. POTASSIUM [Concomitant]
  3. HYDROCHLOROTHIAZIDE [Concomitant]
     Indication: DRUG USE FOR UNKNOWN INDICATION
     Dosage: UNSPECIFIED STRENGTH; DAILY
     Route: 048

REACTIONS (7)
  - ARRHYTHMIA [None]
  - BLOOD POTASSIUM DECREASED [None]
  - BURNING SENSATION [None]
  - CHEST DISCOMFORT [None]
  - MUSCLE SPASMS [None]
  - OEDEMA PERIPHERAL [None]
  - PARAESTHESIA [None]
